FAERS Safety Report 5381893-0 (Version None)
Quarter: 2007Q3

REPORT INFORMATION
  Report Type: 
  Country: None (occurrence: None)
  Receive Date: 20070709
  Receipt Date: 20070629
  Transmission Date: 20080115
  Serious: Yes (Hospitalization)
  Sender: FDA-Public Use
  Company Number: GB-ASTRAZENECA-2007AC01206

PATIENT
  Age: 55 Year
  Sex: Female
  Weight: 60 kg

DRUGS (18)
  1. PROPOFOL [Interacting]
     Indication: GENERAL ANAESTHESIA
     Route: 042
     Dates: start: 20050701, end: 20050701
  2. PROPOFOL [Interacting]
     Indication: INDUCTION OF ANAESTHESIA
     Route: 042
     Dates: start: 20050701, end: 20050701
  3. PROPOFOL [Interacting]
     Route: 042
     Dates: start: 20060601, end: 20060601
  4. PROPOFOL [Interacting]
     Route: 042
     Dates: start: 20060601, end: 20060601
  5. GABAPENTIN [Interacting]
     Indication: MUSCULOSKELETAL PAIN
     Dates: start: 20050501, end: 20061201
  6. ALFENTANIL [Suspect]
     Indication: GENERAL ANAESTHESIA
     Dates: start: 20050701, end: 20050701
  7. FENTANYL [Suspect]
     Indication: GENERAL ANAESTHESIA
     Dates: start: 20050701, end: 20050701
  8. FENTANYL [Suspect]
     Indication: INDUCTION OF ANAESTHESIA
     Dates: start: 20050701, end: 20050701
  9. FENTANYL [Suspect]
     Dates: start: 20060601, end: 20060601
  10. FENTANYL [Suspect]
     Dates: start: 20060601, end: 20060601
  11. FENTANYL [Suspect]
     Dates: start: 20061201, end: 20061201
  12. FENTANYL [Suspect]
     Dates: start: 20061201, end: 20061201
  13. ISOFLURANE [Suspect]
     Indication: MAINTENANCE OF ANAESTHESIA
     Dosage: 0.9-1.4% + OXYGEN AND AIR
     Dates: start: 20060601, end: 20060601
  14. SEVOFLURANE [Suspect]
     Indication: GENERAL ANAESTHESIA
     Dosage: 1.8-2.2% + OXYGEN + AIR
     Dates: start: 20061201, end: 20061201
  15. PARACETAMOL [Concomitant]
     Indication: MUSCULOSKELETAL PAIN
     Dates: start: 20050501
  16. CODEINE PHOSPHATE [Concomitant]
     Indication: MUSCULOSKELETAL PAIN
     Dates: start: 20050501
  17. DEXAMETHASONE [Concomitant]
     Indication: GENERAL ANAESTHESIA
     Dates: start: 20050701, end: 20050701
  18. DEXAMETHASONE [Concomitant]
     Dates: start: 20061201, end: 20061201

REACTIONS (2)
  - DRUG INTERACTION [None]
  - MYOTONIA [None]
